FAERS Safety Report 10904477 (Version 1)
Quarter: 2015Q1

REPORT INFORMATION
  Report Type: Spontaneous
  Country: US (occurrence: None)
  Receive Date: 20150304
  Receipt Date: 20150304
  Transmission Date: 20150721
  Serious: No
  Sender: FDA-Public Use
  Company Number: None

PATIENT
  Age: 37 Year
  Sex: Female
  Weight: 104.33 kg

DRUGS (3)
  1. PROGESTERONE. [Suspect]
     Active Substance: PROGESTERONE
     Indication: PROGESTERONE DECREASED
     Dosage: TAKEN BY MOUTH, 1 CAPSULE
     Dates: start: 20150201, end: 20150302
  2. PROGESTERONE. [Concomitant]
     Active Substance: PROGESTERONE
  3. MULTI VITAMIN AND D3 [Concomitant]

REACTIONS (4)
  - Maternal exposure during pregnancy [None]
  - Abortion spontaneous [None]
  - Counterfeit drug administered [None]
  - Progesterone decreased [None]

NARRATIVE: CASE EVENT DATE: 20150223
